FAERS Safety Report 20817990 (Version 1)
Quarter: 2022Q2

REPORT INFORMATION
  Report Type: Spontaneous
  Country: IN (occurrence: IN)
  Receive Date: 20220512
  Receipt Date: 20220512
  Transmission Date: 20220721
  Serious: Yes (Life-Threatening, Hospitalization, Other)
  Sender: FDA-Public Use
  Company Number: None

PATIENT
  Sex: Male

DRUGS (3)
  1. FUROSEMIDE [Suspect]
     Active Substance: FUROSEMIDE
     Indication: Ventricular septal defect
     Dosage: UNK (PER WEEK)
     Route: 048
  2. FUROSEMIDE [Suspect]
     Active Substance: FUROSEMIDE
     Indication: Atrial septal defect
  3. RANITIDINE [Suspect]
     Active Substance: RANITIDINE
     Indication: Intestinal obstruction
     Dosage: UNK
     Route: 042

REACTIONS (3)
  - Intestinal atresia [Unknown]
  - Necrotising enterocolitis neonatal [Unknown]
  - Off label use [Unknown]
